FAERS Safety Report 19058399 (Version 3)
Quarter: 2021Q2

REPORT INFORMATION
  Report Type: Report from Study
  Country: None (occurrence: GR)
  Receive Date: 20210324
  Receipt Date: 20210412
  Transmission Date: 20210717
  Serious: Yes (Hospitalization)
  Sender: FDA-Public Use
  Company Number: GR-ABBVIE-21K-066-3828151-00

PATIENT
  Age: 67 Year
  Sex: Male
  Weight: 69 kg

DRUGS (6)
  1. DUODOPA [Suspect]
     Active Substance: CARBIDOPA\LEVODOPA
  2. SYMMETREL [Concomitant]
     Active Substance: AMANTADINE HYDROCHLORIDE
     Indication: PARKINSON^S DISEASE
     Dosage: FREQUENCY 1 X 2 (IN THE MORNING, AT 6:00)
     Route: 048
  3. RAFAZIL [Concomitant]
     Indication: PRODUCT USED FOR UNKNOWN INDICATION
     Route: 048
  4. CILROTON [Concomitant]
     Active Substance: DOMPERIDONE
     Indication: PRODUCT USED FOR UNKNOWN INDICATION
     Dosage: UNIT DOSE: 10 ML, THREE TIMES DAILY (MORNING, NOON, NIGHT); STRENGTH: 5 MG / 5 ML
     Route: 048
  5. MADOPAR [Concomitant]
     Active Substance: BENSERAZIDE HYDROCHLORIDE\LEVODOPA
     Indication: PARKINSON^S DISEASE
     Dosage: UNIT DOSE: (100 + 25) MG; FORM STRENGTH: (200 + 50) MG?FREQUENCY 1 X 1 (AT NIGHT)
     Route: 048
  6. DUODOPA [Suspect]
     Active Substance: CARBIDOPA\LEVODOPA
     Indication: PARKINSON^S DISEASE
     Dosage: MORNING DOSE: 11.0 ML, CONTINUOUS RATE: 2.7 ML/H, EXTRA DOSE: 1.5 ML
     Route: 050
     Dates: start: 20200224

REACTIONS (2)
  - Prostatomegaly [Unknown]
  - Calculus bladder [Recovered/Resolved]

NARRATIVE: CASE EVENT DATE: 20210316
